FAERS Safety Report 12703362 (Version 2)
Quarter: 2016Q4

REPORT INFORMATION
  Report Type: Spontaneous
  Country: US (occurrence: US)
  Receive Date: 20160831
  Receipt Date: 20161108
  Transmission Date: 20170207
  Serious: No
  Sender: FDA-Public Use
  Company Number: US-009507513-1608USA014328

PATIENT
  Age: 25 Year
  Sex: Female
  Weight: 145.13 kg

DRUGS (1)
  1. NEXPLANON [Suspect]
     Active Substance: ETONOGESTREL
     Indication: CONTRACEPTION
     Dosage: DOSE/FREQUENCY: 1 ROD/3 YEARS
     Route: 059
     Dates: start: 20150928, end: 20160922

REACTIONS (6)
  - Product quality issue [Unknown]
  - Difficulty removing drug implant [Recovered/Resolved]
  - Pain in extremity [Unknown]
  - Device breakage [Recovering/Resolving]
  - Implant site pain [Recovered/Resolved]
  - No adverse event [Unknown]

NARRATIVE: CASE EVENT DATE: 201602
